FAERS Safety Report 23827042 (Version 1)
Quarter: 2024Q2

REPORT INFORMATION
  Report Type: Spontaneous
  Country: SE (occurrence: SE)
  Receive Date: 20240507
  Receipt Date: 20240507
  Transmission Date: 20240716
  Serious: Yes (Hospitalization, Other)
  Sender: FDA-Public Use
  Company Number: SE-BRISTOL-MYERS SQUIBB COMPANY-2024-059956

PATIENT
  Age: 84 Year
  Sex: Female

DRUGS (1)
  1. APIXABAN [Suspect]
     Active Substance: APIXABAN
     Indication: Ophthalmic vein thrombosis
     Dosage: 2.5 MILLIGRAM, BID,(IN EVERY 0.5 DAY)
     Route: 048

REACTIONS (3)
  - Optic disc haemorrhage [Recovering/Resolving]
  - Conjunctival haemorrhage [Recovering/Resolving]
  - Off label use [Unknown]
